FAERS Safety Report 11368867 (Version 1)
Quarter: 2015Q3

REPORT INFORMATION
  Report Type: Other
  Country: DE (occurrence: DE)
  Receive Date: 20150812
  Receipt Date: 20150812
  Transmission Date: 20151125
  Serious: Yes (Death, Congenital Anomaly)
  Sender: FDA-Public Use
  Company Number: DE-NOVEN PHARMACEUTICALS, INC.-DE2015000653

PATIENT

DRUGS (7)
  1. SALBUTAMOL [Concomitant]
     Active Substance: ALBUTEROL
     Indication: ASTHMA
     Dosage: UNK
     Dates: start: 20140625, end: 20141122
  2. PAROXETINE [Suspect]
     Active Substance: PAROXETINE\PAROXETINE HYDROCHLORIDE
     Dosage: 30 MG, QD (UNTIL GESTATIONAL WEEK 8+5 DAYS)
     Route: 064
     Dates: start: 2014, end: 20141122
  3. METFORMIN [Suspect]
     Active Substance: METFORMIN HYDROCHLORIDE
     Indication: POLYCYSTIC OVARIES
     Dosage: (EXPOSURE: 0 - 6+1 GESTATION WEEK)
     Route: 064
     Dates: start: 20140625, end: 20140807
  4. SERTRALINE [Suspect]
     Active Substance: SERTRALINE HYDROCHLORIDE
     Indication: ANXIETY DISORDER
     Dosage: (EXPOSURE: FROM GESTATION WEEK 4 - 8+5 GESTATIONAL WEEK)
     Route: 064
     Dates: start: 20140723, end: 20140825
  5. JUNIK [Concomitant]
     Active Substance: BECLOMETHASONE DIPROPIONATE
     Indication: ASTHMA
     Dosage: 2 X 0.1 MG, QD
     Dates: start: 20140625, end: 20141122
  6. PAROXETINE [Suspect]
     Active Substance: PAROXETINE\PAROXETINE HYDROCHLORIDE
     Indication: ANXIETY DISORDER
     Dosage: 30 MG, QD (NO INTAKE IN GESTATION WEEK 4+0 )
     Route: 064
     Dates: start: 20140625, end: 2014
  7. FEMIBION [Concomitant]
     Active Substance: VITAMINS

REACTIONS (2)
  - Foetal exposure during pregnancy [Fatal]
  - Congenital hydrocephalus [Fatal]
